FAERS Safety Report 8464968-9 (Version None)
Quarter: 2012Q2

REPORT INFORMATION
  Report Type: 
  Country: None (occurrence: None)
  Receive Date: 20120619
  Receipt Date: 20120604
  Transmission Date: 20120825
  Serious: Yes (Other)
  Sender: FDA-Public Use
  Company Number: 2012P1033914

PATIENT
  Age: 33 Year
  Sex: Female

DRUGS (1)
  1. CEFUROXIME [Suspect]
     Indication: PELVIC INFLAMMATORY DISEASE
     Dosage: ;IV
     Route: 042
     Dates: start: 20110612, end: 20110701

REACTIONS (16)
  - MYALGIA [None]
  - HYPERHIDROSIS [None]
  - SENSE OF OPPRESSION [None]
  - DYSPNOEA [None]
  - VISION BLURRED [None]
  - SUFFOCATION FEELING [None]
  - EYE SWELLING [None]
  - PYREXIA [None]
  - NASOPHARYNGITIS [None]
  - BACK PAIN [None]
  - SINUS TACHYCARDIA [None]
  - INFLUENZA [None]
  - ARTHRALGIA [None]
  - CHEST DISCOMFORT [None]
  - CONJUNCTIVAL HYPERAEMIA [None]
  - ASTHENIA [None]
